FAERS Safety Report 8523588-8 (Version None)
Quarter: 2012Q3

REPORT INFORMATION
  Report Type: 
  Country: None (occurrence: None)
  Receive Date: 20120720
  Receipt Date: 20100913
  Transmission Date: 20120928
  Serious: Yes (Other)
  Sender: FDA-Public Use
  Company Number: US-BAYER-201017246NA

PATIENT
  Age: 30 Year
  Sex: Female
  Weight: 56.818 kg

DRUGS (16)
  1. VITAMIN TAB [Suspect]
  2. DROSPIRENONE AND ETHINYL ESTRADIOL [Suspect]
     Indication: CONTRACEPTION
     Dosage: UNK
     Route: 048
     Dates: start: 20060101, end: 20090815
  3. ZUMIS NOS [Concomitant]
     Dates: start: 20040101
  4. ZOMIG [Concomitant]
  5. LEXAPRO [Concomitant]
  6. ANTIBIOTICS [Concomitant]
  7. MIRENA [Concomitant]
     Route: 015
     Dates: start: 20091001
  8. FROVA [Concomitant]
     Dates: start: 20040101
  9. XYZAL [Concomitant]
  10. ZUMIS NOS [Concomitant]
     Dates: start: 20040101
  11. OTHER RESPIRATORY SYSTEM PRODUCTS [Concomitant]
     Indication: ASTHMA
  12. NSAID'S [Concomitant]
  13. YAZ [Suspect]
     Indication: CONTRACEPTION
     Route: 048
     Dates: start: 20060101, end: 20090815
  14. YASMIN [Suspect]
     Indication: CONTRACEPTION
     Dosage: UNK
     Route: 048
     Dates: start: 20060101, end: 20090815
  15. TOPAMAX [Concomitant]
     Indication: MIGRAINE PROPHYLAXIS
     Dates: start: 20070101
  16. PROTONIX [Concomitant]
     Indication: GASTROOESOPHAGEAL REFLUX DISEASE
     Route: 048
     Dates: start: 20050101

REACTIONS (3)
  - CHOLECYSTITIS CHRONIC [None]
  - GASTROOESOPHAGEAL REFLUX DISEASE [None]
  - PALPITATIONS [None]
